FAERS Safety Report 6283835-2 (Version None)
Quarter: 2009Q3

REPORT INFORMATION
  Report Type: 
  Country: None (occurrence: None)
  Receive Date: 20090724
  Receipt Date: 20090714
  Transmission Date: 20100115
  Serious: Yes (Other)
  Sender: FDA-Public Use
  Company Number: JP-ASTRAZENECA-2009SE04962

PATIENT
  Age: 78 Year
  Sex: Female
  Weight: 60 kg

DRUGS (7)
  1. CRESTOR [Suspect]
     Indication: HYPERLIPIDAEMIA
     Route: 048
     Dates: start: 20090615, end: 20090625
  2. TAKEPRON [Concomitant]
     Route: 048
     Dates: start: 20090607, end: 20090701
  3. RADICUT [Concomitant]
     Dosage: 30 MG X 2V
     Route: 042
     Dates: start: 20090605, end: 20090618
  4. ASPIRIN [Concomitant]
     Route: 048
     Dates: start: 20090625
  5. BEC [Concomitant]
     Route: 048
     Dates: start: 20090625, end: 20090701
  6. ARANIDIPINE [Concomitant]
     Route: 065
     Dates: start: 20090625, end: 20090701
  7. LAXOBERON [Concomitant]
     Route: 048

REACTIONS (2)
  - BLOOD LACTATE DEHYDROGENASE INCREASED [None]
  - HYPERTRANSAMINASAEMIA [None]
